FAERS Safety Report 5732851-5 (Version None)
Quarter: 2008Q2

REPORT INFORMATION
  Report Type: 
  Country: None (occurrence: None)
  Receive Date: 20080507
  Receipt Date: 20080507
  Transmission Date: 20081010
  Serious: No
  Sender: FDA-Public Use
  Company Number: None

PATIENT
  Age: 44 Year
  Sex: Female
  Weight: 74.3899 kg

DRUGS (2)
  1. ZELNORM [Suspect]
     Indication: CONSTIPATION
     Dosage: 2X DAILY PO
     Route: 048
     Dates: start: 20020109, end: 20041212
  2. REGLAN [Suspect]
     Indication: GASTROOESOPHAGEAL REFLUX DISEASE
     Dosage: 2XDAILY PO
     Route: 048
     Dates: start: 19980207, end: 20001213

REACTIONS (12)
  - ABDOMINAL DISTENSION [None]
  - CHEST PAIN [None]
  - DIARRHOEA [None]
  - DYSPNOEA [None]
  - FAECAL INCONTINENCE [None]
  - FAECES DISCOLOURED [None]
  - HAEMATOCHEZIA [None]
  - HYPERHIDROSIS [None]
  - NAUSEA [None]
  - PAIN [None]
  - SWELLING [None]
  - VOMITING [None]
